FAERS Safety Report 10363777 (Version 1)
Quarter: 2014Q3

REPORT INFORMATION
  Report Type: Spontaneous
  Country: US (occurrence: None)
  Receive Date: 20140801
  Receipt Date: 20140801
  Transmission Date: 20150326
  Serious: Yes (Life-Threatening)
  Sender: FDA-Public Use
  Company Number: CPI 6221

PATIENT
  Age: 69 Year
  Sex: Female
  Weight: 70 kg

DRUGS (7)
  1. INTRAVENOUS ANTIMICROBIAL THERAPY [Concomitant]
  2. FLUIMUCIL [Suspect]
     Active Substance: ACETYLCYSTEINE
     Indication: FOOD POISONING
     Dosage: UNKNOWN DOSE/FREQ ORAL
     Route: 048
  3. POTASSIUM INFUSIONS [Concomitant]
  4. SILIBININ-C [Concomitant]
  5. CHARCOAL (CARBOMIX) [Concomitant]
  6. PANTROPRAZOLE [Concomitant]
  7. LACTULOSE (LAEVOLAC) [Concomitant]

REACTIONS (6)
  - Hyperglycaemia [None]
  - Tachycardia [None]
  - Renal failure acute [None]
  - Coma [None]
  - Leukocytosis [None]
  - Ventricular fibrillation [None]

NARRATIVE: CASE EVENT DATE: 2013
